FAERS Safety Report 23436334 (Version 1)
Quarter: 2024Q1

REPORT INFORMATION
  Report Type: Spontaneous
  Country: CN (occurrence: CN)
  Receive Date: 20240124
  Receipt Date: 20240124
  Transmission Date: 20240410
  Serious: Yes (Hospitalization, Other)
  Sender: FDA-Public Use
  Company Number: CN-GTI-000109

PATIENT
  Age: 56 Year
  Sex: Male

DRUGS (1)
  1. PREDNISONE [Suspect]
     Active Substance: PREDNISONE
     Indication: Secondary adrenocortical insufficiency
     Route: 065

REACTIONS (7)
  - Nocardiosis [Recovered/Resolved]
  - Abdominal abscess [Recovered/Resolved]
  - Pyrexia [Recovered/Resolved]
  - Pneumonia [Recovered/Resolved]
  - Tracheal diverticulum [Recovered/Resolved]
  - Pericardial effusion [Recovered/Resolved]
  - Leukocytosis [Recovered/Resolved]
